FAERS Safety Report 7796264-7 (Version None)
Quarter: 2011Q4

REPORT INFORMATION
  Report Type: 
  Country: None (occurrence: None)
  Receive Date: 20111004
  Receipt Date: 20110923
  Transmission Date: 20120403
  Serious: Yes (Death, Hospitalization, Other)
  Sender: FDA-Public Use
  Company Number: US-RB-028283-11

PATIENT
  Sex: Female

DRUGS (2)
  1. SUBOXONE [Suspect]
     Indication: DRUG DEPENDENCE
     Dosage: SUBLINGUAL FILM; DOSING INFORMATION UNKNOWN
     Route: 060
     Dates: start: 20110527, end: 20110715
  2. TYVASO [Suspect]
     Indication: PULMONARY HYPERTENSION
     Dosage: UNKNOWN DOSING DETAILS

REACTIONS (3)
  - OFF LABEL USE [None]
  - SYNCOPE [None]
  - PULMONARY HYPERTENSION [None]
